FAERS Safety Report 10313686 (Version 1)
Quarter: 2014Q3

REPORT INFORMATION
  Report Type: Spontaneous
  Country: FR (occurrence: FR)
  Receive Date: 20140718
  Receipt Date: 20140718
  Transmission Date: 20150326
  Serious: Yes (Hospitalization)
  Sender: FDA-Public Use
  Company Number: FR-PERRIGO-14FR006867

PATIENT
  Age: 24 Year
  Sex: Female
  Weight: 40 kg

DRUGS (3)
  1. PARACETAMOL [Suspect]
     Active Substance: ACETAMINOPHEN
     Indication: INTENTIONAL OVERDOSE
     Dosage: 5 G, SINGLE
     Route: 048
  2. POTASSIUM CHLORIDE RX 8 MEQ (600MG) 8Y8 [Suspect]
     Active Substance: POTASSIUM CHLORIDE
     Indication: INTENTIONAL OVERDOSE
     Dosage: 72 G, SINGLE
     Route: 048
  3. LEVOTHYROXINE SODIUM. [Suspect]
     Active Substance: LEVOTHYROXINE SODIUM
     Indication: INTENTIONAL OVERDOSE
     Dosage: UNKNOWN, SINGLE
     Route: 048

REACTIONS (6)
  - Bundle branch block right [Recovered/Resolved]
  - Poisoning [Recovered/Resolved]
  - Hyperkalaemia [Recovered/Resolved]
  - Circulatory collapse [Recovered/Resolved]
  - Intentional overdose [Recovered/Resolved]
  - Agitation [None]
